FAERS Safety Report 4790550-0 (Version None)
Quarter: 2005Q4

REPORT INFORMATION
  Report Type: 
  Country: None (occurrence: None)
  Receive Date: 20051005
  Receipt Date: 20050926
  Transmission Date: 20060501
  Serious: Yes (Other)
  Sender: FDA-Public Use
  Company Number: 2005118563

PATIENT
  Sex: Male

DRUGS (1)
  1. VIAGRA [Suspect]
     Indication: ILL-DEFINED DISORDER
     Dosage: ILL-DEFINED DISORDER
     Route: 065

REACTIONS (3)
  - DRUG INEFFECTIVE [None]
  - POOR PERIPHERAL CIRCULATION [None]
  - VISUAL ACUITY REDUCED [None]
